FAERS Safety Report 5040698-0 (Version None)
Quarter: 2006Q2

REPORT INFORMATION
  Report Type: 
  Country: None (occurrence: None)
  Receive Date: 20060630
  Receipt Date: 20060630
  Transmission Date: 20061013
  Serious: Yes (Hospitalization)
  Sender: FDA-Public Use
  Company Number: None

PATIENT
  Sex: Male
  Weight: 16.7 kg

DRUGS (5)
  1. ABILIFY [Suspect]
     Indication: BIPOLAR DISORDER
     Dosage: 7.5MG (HALF TAB)   DAILY AT BEDTIME  ORAL
     Route: 048
     Dates: start: 20060623, end: 20060624
  2. CLONIDINE [Concomitant]
  3. CONCERTA [Concomitant]
  4. RITALIN [Concomitant]
  5. DEPAKOTE [Concomitant]

REACTIONS (8)
  - CEREBROVASCULAR ACCIDENT [None]
  - CRYING [None]
  - DEPRESSED LEVEL OF CONSCIOUSNESS [None]
  - DYSTONIA [None]
  - MOVEMENT DISORDER [None]
  - SPEECH DISORDER [None]
  - TORTICOLLIS [None]
  - TREMOR [None]
